FAERS Safety Report 21034738 (Version 2)
Quarter: 2022Q3

REPORT INFORMATION
  Report Type: Report from Study
  Country: KR (occurrence: KR)
  Receive Date: 20220701
  Receipt Date: 20220718
  Transmission Date: 20221027
  Serious: Yes (Hospitalization)
  Sender: FDA-Public Use
  Company Number: KR-JNJFOC-20220657143

PATIENT
  Age: 67 Year
  Sex: Male
  Weight: 59.5 kg

DRUGS (5)
  1. APALUTAMIDE [Suspect]
     Active Substance: APALUTAMIDE
     Indication: Prostate cancer
     Route: 048
     Dates: start: 20211110, end: 20220422
  2. APALUTAMIDE [Suspect]
     Active Substance: APALUTAMIDE
     Route: 048
     Dates: start: 20220622, end: 20220625
  3. ASPIRIN [Concomitant]
     Active Substance: ASPIRIN
     Indication: Prophylaxis
     Route: 048
     Dates: start: 20220513
  4. EZETIMIBE\ROSUVASTATIN [Concomitant]
     Active Substance: EZETIMIBE\ROSUVASTATIN
     Indication: Hyperlipidaemia
     Dosage: ^ROSUZET 10/20^
     Route: 048
     Dates: start: 20220611, end: 20220629
  5. LOTAR [AMLODIPINE BESILATE;LOSARTAN POTASSIUM] [Concomitant]
     Indication: Hypertension
     Dosage: ^AMOSARTAN 5/50^
     Route: 048
     Dates: start: 20220611, end: 20220629

REACTIONS (1)
  - Pyelonephritis acute [Recovered/Resolved]

NARRATIVE: CASE EVENT DATE: 20220627
